FAERS Safety Report 5549645-6 (Version None)
Quarter: 2007Q4

REPORT INFORMATION
  Report Type: 
  Country: None (occurrence: None)
  Receive Date: 20071212
  Receipt Date: 20070512
  Transmission Date: 20080405
  Serious: No
  Sender: FDA-Public Use
  Company Number: US-AMGEN-KDL215181

PATIENT
  Sex: Female

DRUGS (2)
  1. ENBREL [Suspect]
     Indication: RHEUMATOID ARTHRITIS
     Route: 058
     Dates: start: 20060215
  2. METHOTREXATE [Concomitant]
     Route: 048
     Dates: start: 20020101

REACTIONS (13)
  - COUGH [None]
  - GAIT DISTURBANCE [None]
  - INJECTION SITE ERYTHEMA [None]
  - INJECTION SITE INDURATION [None]
  - INJECTION SITE IRRITATION [None]
  - INJECTION SITE PAIN [None]
  - INJECTION SITE PRURITUS [None]
  - INJECTION SITE REACTION [None]
  - INJECTION SITE SWELLING [None]
  - INJECTION SITE WARMTH [None]
  - PHARYNGOLARYNGEAL PAIN [None]
  - THERAPEUTIC RESPONSE DELAYED [None]
  - VISUAL ACUITY REDUCED [None]
